FAERS Safety Report 26202480 (Version 1)
Quarter: 2025Q4

REPORT INFORMATION
  Report Type: Spontaneous
  Country: CN (occurrence: CN)
  Receive Date: 20251226
  Receipt Date: 20251226
  Transmission Date: 20260117
  Serious: Yes (Other)
  Sender: NOVARTIS
  Company Number: CN-002147023-NVSC2025CN195833

PATIENT
  Age: 3 Year
  Sex: Male
  Weight: 12 kg

DRUGS (2)
  1. OXCARBAZEPINE [Suspect]
     Active Substance: OXCARBAZEPINE
     Indication: Partial seizures
     Dosage: 5.5 ML, BID
     Route: 048
     Dates: start: 20220919
  2. OXCARBAZEPINE [Suspect]
     Active Substance: OXCARBAZEPINE
     Dosage: 5 ML, Q12H
     Route: 048
     Dates: start: 20251211

REACTIONS (5)
  - Drug level increased [Unknown]
  - Blood sodium decreased [Unknown]
  - Developmental delay [Unknown]
  - Emotional disorder [Unknown]
  - Hypotonia [Unknown]

NARRATIVE: CASE EVENT DATE: 20251211
